FAERS Safety Report 20735923 (Version 2)
Quarter: 2022Q2

REPORT INFORMATION
  Report Type: Spontaneous
  Country: US (occurrence: US)
  Receive Date: 20220421
  Receipt Date: 20220511
  Transmission Date: 20220720
  Serious: Yes (Other)
  Sender: FDA-Public Use
  Company Number: US-ORGANON-O2204USA001487

PATIENT
  Sex: Female
  Weight: 62.585 kg

DRUGS (6)
  1. FOLLISTIM AQ [Suspect]
     Active Substance: FOLLITROPIN
     Indication: Infertility female
     Dosage: 300IU/0.36ML 1=1 (INJECT 50 UNITS UNDER THE SKIN SUBCUTANEOUS INJECTION EVERYDAY)
     Route: 058
     Dates: start: 20190308
  2. FOLLISTIM AQ [Suspect]
     Active Substance: FOLLITROPIN
     Dosage: UNK UNK, CYCLICAL
     Route: 058
     Dates: start: 20190309, end: 20190319
  3. FOLLISTIM AQ [Suspect]
     Active Substance: FOLLITROPIN
     Dosage: UNK UNK, CYCLICAL
     Route: 058
     Dates: start: 20190725, end: 20190805
  4. FOLLISTIM AQ [Suspect]
     Active Substance: FOLLITROPIN
     Dosage: UNK UNK, CYCLICAL
     Route: 058
     Dates: start: 20190829, end: 20190911
  5. FOLLISTIM AQ [Suspect]
     Active Substance: FOLLITROPIN
     Dosage: UNK UNK, CYCLICAL
     Route: 058
     Dates: start: 20220423
  6. LEVOTHYROXINE [Concomitant]
     Active Substance: LEVOTHYROXINE
     Dosage: UNK

REACTIONS (1)
  - Nephrolithiasis [Unknown]
